FAERS Safety Report 12154424 (Version 2)
Quarter: 2016Q1

REPORT INFORMATION
  Report Type: Spontaneous
  Country: US (occurrence: US)
  Receive Date: 20160307
  Receipt Date: 20160311
  Transmission Date: 20160526
  Serious: No
  Sender: FDA-Public Use
  Company Number: US-PFIZER INC-2016088230

PATIENT
  Age: 32 Year
  Sex: Male
  Weight: 70.31 kg

DRUGS (5)
  1. XANAX [Suspect]
     Active Substance: ALPRAZOLAM
     Indication: AGORAPHOBIA
  2. XANAX [Suspect]
     Active Substance: ALPRAZOLAM
     Indication: GENERALISED ANXIETY DISORDER
     Dosage: 2 MG TABLET TOOK PIECE OF ONE OF THE PILLS
     Dates: start: 20160210
  3. XANAX [Suspect]
     Active Substance: ALPRAZOLAM
     Indication: SEIZURE
  4. XANAX [Suspect]
     Active Substance: ALPRAZOLAM
     Indication: EPILEPSY
  5. ALPRAZOLAM. [Suspect]
     Active Substance: ALPRAZOLAM
     Dosage: UNK

REACTIONS (4)
  - Intentional product misuse [Unknown]
  - Dysgeusia [Unknown]
  - Product physical issue [Unknown]
  - Suspected counterfeit product [Unknown]

NARRATIVE: CASE EVENT DATE: 20160210
